FAERS Safety Report 8603786-5 (Version None)
Quarter: 2012Q3

REPORT INFORMATION
  Report Type: 
  Country: None (occurrence: None)
  Receive Date: 20120817
  Receipt Date: 20120809
  Transmission Date: 20120928
  Serious: Yes (Other)
  Sender: FDA-Public Use
  Company Number: GB-ALLERGAN-1210946US

PATIENT
  Age: 65 Year
  Sex: Female

DRUGS (1)
  1. OZURDEX [Suspect]
     Indication: MACULAR OEDEMA
     Dosage: 0.7 MG, SINGLE (INJECTED AT 4-MONTHLY INTERVALS)
     Route: 031

REACTIONS (2)
  - CATARACT [None]
  - VITREOUS HAEMORRHAGE [None]
